FAERS Safety Report 5870524-9 (Version None)
Quarter: 2008Q3

REPORT INFORMATION
  Report Type: 
  Country: None (occurrence: None)
  Receive Date: 20080904
  Receipt Date: 20080825
  Transmission Date: 20090109
  Serious: Yes (Life-Threatening)
  Sender: FDA-Public Use
  Company Number: JP-MERCK-0707USA03774

PATIENT
  Age: 75 Year
  Sex: Female

DRUGS (7)
  1. FOSAMAX [Suspect]
     Indication: OSTEOPOROSIS
     Route: 048
     Dates: start: 20070210, end: 20070228
  2. WARFARIN POTASSIUM [Suspect]
     Route: 048
     Dates: start: 20001121
  3. LOXONIN [Concomitant]
     Route: 048
     Dates: start: 20070210
  4. BUFFERIN [Concomitant]
     Route: 048
     Dates: start: 20001121
  5. PRAVASTATIN [Concomitant]
     Route: 048
     Dates: start: 20001121
  6. VASOTEC [Concomitant]
     Route: 048
     Dates: start: 20001121
  7. ZANTAC [Concomitant]
     Route: 048
     Dates: start: 20001121

REACTIONS (3)
  - DRUG EFFECT DECREASED [None]
  - DRUG INTERACTION [None]
  - INTERNATIONAL NORMALISED RATIO INCREASED [None]
